FAERS Safety Report 8177420-5 (Version None)
Quarter: 2012Q1

REPORT INFORMATION
  Report Type: 
  Country: None (occurrence: None)
  Receive Date: 20120301
  Receipt Date: 20120123
  Transmission Date: 20120608
  Serious: Yes (Hospitalization)
  Sender: FDA-Public Use
  Company Number: CA-JNJFOC-20120206193

PATIENT
  Sex: Male

DRUGS (12)
  1. VANCOMYCIN [Concomitant]
     Dosage: FOR 7 DAYS
     Route: 048
  2. FOLIC ACID [Concomitant]
     Route: 048
  3. PREDNISONE [Concomitant]
     Dosage: QUARTERLY
     Route: 048
  4. VANCOMYCIN [Concomitant]
     Dosage: FOR 7 DAYS
     Route: 048
  5. SLOW-K [Concomitant]
     Route: 048
  6. HUMIRA [Concomitant]
     Route: 058
  7. METHOTREXATE [Concomitant]
     Route: 058
  8. PREDNISONE [Concomitant]
     Dosage: FOR 7 DAYS
     Route: 048
  9. MODULON [Concomitant]
     Dosage: 1/2 HR AC TIDX 1 MONTH
     Route: 048
  10. VANCOMYCIN [Concomitant]
     Dosage: FOR 7 DAYS
     Route: 048
  11. CALCIUM [Concomitant]
     Route: 048
  12. REMICADE [Suspect]
     Indication: CROHN'S DISEASE
     Route: 042

REACTIONS (3)
  - CLOSTRIDIAL INFECTION [None]
  - CROHN'S DISEASE [None]
  - PYODERMA GANGRENOSUM [None]
